FAERS Safety Report 9762601 (Version 1)
Quarter: 2013Q4

REPORT INFORMATION
  Report Type: Spontaneous
  Country: GB (occurrence: None)
  Receive Date: 20131213
  Receipt Date: 20131213
  Transmission Date: 20140711
  Serious: Yes (Other)
  Sender: FDA-Public Use
  Company Number: AUR-APL-2013-10340

PATIENT
  Age: 71 Year
  Sex: Female

DRUGS (4)
  1. ALENDRONIC ACID [Suspect]
     Indication: PRODUCT USED FOR UNKNOWN INDICATION
     Dosage: 10 MG (70 MG, 1 IN 1 WEEK), ORAL
     Route: 048
     Dates: start: 20070123, end: 20120206
  2. ALLOPURINOL [Concomitant]
  3. OMEPRAZOLE (OMEPRAZOLE) [Concomitant]
  4. SIMVASTATIN (SIMVASTATIN) [Concomitant]

REACTIONS (3)
  - Osteomyelitis [None]
  - Infection [None]
  - Tooth disorder [None]
